FAERS Safety Report 6684764-2 (Version None)
Quarter: 2010Q2

REPORT INFORMATION
  Report Type: 
  Country: None (occurrence: None)
  Receive Date: 20100416
  Receipt Date: 20100406
  Transmission Date: 20101027
  Serious: Yes (Death)
  Sender: FDA-Public Use
  Company Number: IT-WATSON-2010-04690

PATIENT
  Age: 42 Year
  Sex: Male
  Weight: 84 kg

DRUGS (3)
  1. NICOTINE POLACRILEX (WATSON LABORATORIES) [Suspect]
     Indication: DRUG USE FOR UNKNOWN INDICATION
     Dosage: 1000 MG, SINGLE
     Route: 048
  2. BRUCINE [Suspect]
     Indication: DRUG USE FOR UNKNOWN INDICATION
     Dosage: 70 MG, SINGLE
     Route: 048
  3. ALCOHOL                            /00002101/ [Suspect]
     Indication: DRUG USE FOR UNKNOWN INDICATION
     Dosage: UNK
     Route: 048

REACTIONS (2)
  - CARDIOPULMONARY FAILURE [None]
  - DRUG TOXICITY [None]
